FAERS Safety Report 7270648-8 (Version None)
Quarter: 2011Q1

REPORT INFORMATION
  Report Type: 
  Country: None (occurrence: None)
  Receive Date: 20110202
  Receipt Date: 20110131
  Transmission Date: 20110831
  Serious: Yes (Hospitalization)
  Sender: FDA-Public Use
  Company Number: A0910714A

PATIENT
  Age: 55 Year
  Sex: Male

DRUGS (4)
  1. AVANDIA [Suspect]
     Route: 048
     Dates: start: 20000101, end: 20080101
  2. ATENOLOL [Concomitant]
  3. FUROSEMIDE [Concomitant]
  4. GLIPIZIDE [Concomitant]

REACTIONS (2)
  - RENAL FAILURE [None]
  - DIALYSIS [None]
